FAERS Safety Report 7655462-3 (Version None)
Quarter: 2011Q3

REPORT INFORMATION
  Report Type: 
  Country: None (occurrence: None)
  Receive Date: 20110804
  Receipt Date: 20110728
  Transmission Date: 20111222
  Serious: No
  Sender: FDA-Public Use
  Company Number: US-PFIZER INC-2011173161

PATIENT
  Age: 69 Year
  Sex: Female

DRUGS (5)
  1. VITAMIN D [Concomitant]
     Dosage: 50000 MG, WEEKLY
  2. IRON [Concomitant]
     Dosage: 325 MG, 3X/DAY
  3. BENAZEPRIL [Concomitant]
     Dosage: UNK, DAILY
  4. ASACOL [Suspect]
     Dosage: UNK
  5. SULFASALAZINE [Suspect]
     Indication: COLITIS ULCERATIVE
     Dosage: 500 MG, 3X/DAY

REACTIONS (1)
  - LENTIGO [None]
